FAERS Safety Report 23586188 (Version 3)
Quarter: 2024Q3

REPORT INFORMATION
  Report Type: Report from Study
  Country: US (occurrence: US)
  Receive Date: 20240301
  Receipt Date: 20240805
  Transmission Date: 20241017
  Serious: Yes (Other)
  Sender: JOHNSON AND JOHNSON
  Company Number: US-JNJFOC-20240268164

PATIENT
  Age: 54 Year
  Sex: Female

DRUGS (7)
  1. TOPIRAMATE [Suspect]
     Active Substance: TOPIRAMATE
     Indication: Depression
     Route: 048
     Dates: start: 1998
  2. SPRAVATO [Suspect]
     Active Substance: ESKETAMINE
     Indication: Depression
     Dosage: ^84 MG, 85 TOTAL DOSES^
     Dates: start: 20230118, end: 20240131
  3. SPRAVATO [Suspect]
     Active Substance: ESKETAMINE
     Dosage: ^84 MG, RECENT ADMINISTERED DOSE^
     Dates: start: 20240212, end: 20240212
  4. LATUDA [Suspect]
     Active Substance: LURASIDONE HYDROCHLORIDE
     Indication: Depression
     Route: 065
  5. HYDROXYZINE [Suspect]
     Active Substance: HYDROXYZINE HYDROCHLORIDE
     Indication: Depression
     Route: 065
  6. LITHIUM [Concomitant]
     Active Substance: LITHIUM
  7. PROZAC [Concomitant]
     Active Substance: FLUOXETINE HYDROCHLORIDE

REACTIONS (16)
  - Bipolar disorder [Unknown]
  - Craniofacial fracture [Unknown]
  - Breast cancer [Unknown]
  - Suicide attempt [Unknown]
  - Impaired gastric emptying [Unknown]
  - Lower limb fracture [Unknown]
  - Fall [Unknown]
  - Depression [Unknown]
  - Adverse drug reaction [Unknown]
  - Borderline personality disorder [Unknown]
  - Off label use [Unknown]
  - Panic attack [Unknown]
  - Agoraphobia [Unknown]
  - Tremor [Unknown]
  - Pain [Unknown]
  - Drug ineffective [Unknown]

NARRATIVE: CASE EVENT DATE: 20240205
